FAERS Safety Report 8819410 (Version 1)
Quarter: 2012Q4

REPORT INFORMATION
  Report Type: Spontaneous
  Country: US (occurrence: None)
  Receive Date: 20121003
  Receipt Date: 20121003
  Transmission Date: 20130627
  Serious: Yes (Other)
  Sender: FDA-Public Use
  Company Number: 2012P1055218

PATIENT
  Age: 77 Year
  Sex: Female
  Weight: 62.6 kg

DRUGS (15)
  1. FENTANYL PATCH [Suspect]
     Indication: NEUROPATHY
     Route: 062
     Dates: start: 2004, end: 201207
  2. FENTANYL PATCH [Suspect]
     Indication: BACK INJURY
     Route: 062
     Dates: start: 201207
  3. OXYCODONE [Concomitant]
  4. GLIMEPIRIDE [Concomitant]
  5. METFORMIN [Concomitant]
  6. FENOFIBRATE [Concomitant]
  7. OMEPRAZOLE [Concomitant]
  8. SIMVASTATIN [Concomitant]
  9. HYDROXYZINE [Concomitant]
  10. ESTRADIOL [Concomitant]
  11. MEDROXYPROGESTERONE [Concomitant]
  12. GABAPENTIN [Concomitant]
  13. IPRATROPIUM [Concomitant]
  14. NOVOLOG SLIDING SCALE [Concomitant]
  15. GLIPIZIDE [Concomitant]

REACTIONS (5)
  - Blood glucose increased [None]
  - Drug effect decreased [None]
  - Blood glucose decreased [None]
  - Product adhesion issue [None]
  - Incorrect drug administration duration [None]
